FAERS Safety Report 18314983 (Version 2)
Quarter: 2020Q4

REPORT INFORMATION
  Report Type: Report from Study
  Country: FR (occurrence: FR)
  Receive Date: 20200925
  Receipt Date: 20201001
  Transmission Date: 20210113
  Serious: Yes (Other)
  Sender: FDA-Public Use
  Company Number: FR-US-PROVELL PHARMACEUTICALS LLC-9031282

PATIENT
  Age: 44 Year
  Sex: Female
  Weight: 54 kg

DRUGS (2)
  1. LEVOTHYROX [Suspect]
     Active Substance: LEVOTHYROXINE
     Indication: AUTOIMMUNE THYROIDITIS
     Dates: start: 20120331
  2. LEVOTHYROX [Suspect]
     Active Substance: LEVOTHYROXINE
     Dosage: LEVOTHYROX NF 112.5 / 118.75 (UNSPECIFIED UNITS)

REACTIONS (15)
  - Discomfort [Recovering/Resolving]
  - Depression [Unknown]
  - Palpitations [Not Recovered/Not Resolved]
  - Anger [Unknown]
  - Lethargy [Unknown]
  - Asthenia [Not Recovered/Not Resolved]
  - Blood thyroid stimulating hormone increased [Unknown]
  - Hyperthyroidism [Unknown]
  - Feeling abnormal [Unknown]
  - Gastrointestinal disorder [Recovering/Resolving]
  - Presyncope [Unknown]
  - Dizziness [Recovering/Resolving]
  - Hypothyroidism [Unknown]
  - Fatigue [Not Recovered/Not Resolved]
  - Tachycardia [Recovering/Resolving]

NARRATIVE: CASE EVENT DATE: 201204
